FAERS Safety Report 16390584 (Version 1)
Quarter: 2019Q2

REPORT INFORMATION
  Report Type: Spontaneous
  Country: PT (occurrence: PT)
  Receive Date: 20190604
  Receipt Date: 20190604
  Transmission Date: 20190711
  Serious: Yes (Hospitalization)
  Sender: FDA-Public Use
  Company Number: PT-PFIZER INC-2019105030

PATIENT
  Age: 73 Year
  Sex: Male
  Weight: 76 kg

DRUGS (1)
  1. LORLATINIB [Suspect]
     Active Substance: LORLATINIB
     Indication: LUNG NEOPLASM MALIGNANT
     Dosage: 100 MG, DAILY
     Route: 048
     Dates: start: 20181102

REACTIONS (3)
  - Delirium [Recovered/Resolved]
  - Brain abscess [Unknown]
  - Anaemia [Unknown]

NARRATIVE: CASE EVENT DATE: 20181210
